FAERS Safety Report 13692569 (Version 2)
Quarter: 2017Q3

REPORT INFORMATION
  Report Type: Spontaneous
  Country: US (occurrence: US)
  Receive Date: 20170627
  Receipt Date: 20170719
  Transmission Date: 20171127
  Serious: No
  Sender: FDA-Public Use
  Company Number: US-ALEXION PHARMACEUTICALS INC.-A201706972

PATIENT
  Sex: Male

DRUGS (1)
  1. SOLIRIS [Suspect]
     Active Substance: ECULIZUMAB
     Indication: PAROXYSMAL NOCTURNAL HAEMOGLOBINURIA
     Dosage: UNK, EVERY 6 WEEKS
     Route: 042

REACTIONS (3)
  - Inappropriate schedule of drug administration [Unknown]
  - Joint stiffness [Unknown]
  - Joint swelling [Unknown]

NARRATIVE: CASE EVENT DATE: 201707
